FAERS Safety Report 15674952 (Version 3)
Quarter: 2019Q1

REPORT INFORMATION
  Report Type: Spontaneous
  Country: IT (occurrence: IT)
  Receive Date: 20181130
  Receipt Date: 20190208
  Transmission Date: 20190417
  Serious: Yes (Other)
  Sender: FDA-Public Use
  Company Number: IT-ACCORD-094412

PATIENT
  Age: 60 Year
  Sex: Male
  Weight: 90 kg

DRUGS (2)
  1. CISPLATIN ACCORD HEALTHCARE ITALY [Concomitant]
     Indication: CHOLANGIOCARCINOMA
     Dosage: 1 MG / ML CONCENTRATE FOR SOLUTION
     Route: 042
     Dates: start: 20170817
  2. GEMCITABINE ACCORD [Suspect]
     Active Substance: GEMCITABINE HYDROCHLORIDE
     Indication: CHOLANGIOCARCINOMA
     Dosage: 100 MG / ML CONCENTRATE FOR SOLUTION FOR INFUSION
     Route: 042
     Dates: start: 20170817

REACTIONS (5)
  - Anaemia [Recovered/Resolved]
  - Off label use [Unknown]
  - Leukopenia [Recovered/Resolved]
  - Erythropenia [Recovered/Resolved]
  - Neutropenia [Recovered/Resolved]

NARRATIVE: CASE EVENT DATE: 20171005
